FAERS Safety Report 18241093 (Version 4)
Quarter: 2020Q4

REPORT INFORMATION
  Report Type: Spontaneous
  Country: US (occurrence: US)
  Receive Date: 20200908
  Receipt Date: 20201218
  Transmission Date: 20210113
  Serious: Yes (Hospitalization)
  Sender: FDA-Public Use
  Company Number: US-GLOBAL BLOOD THERAPEUTICS INC-US-GBT-20-02508

PATIENT
  Age: 34 Year
  Sex: Male

DRUGS (2)
  1. OXBRYTA [Suspect]
     Active Substance: VOXELOTOR
     Indication: PRODUCT USED FOR UNKNOWN INDICATION
     Dates: end: 2020
  2. OXBRYTA [Suspect]
     Active Substance: VOXELOTOR
     Dates: start: 2020

REACTIONS (4)
  - Abdominal pain upper [Not Recovered/Not Resolved]
  - Sickle cell anaemia with crisis [Unknown]
  - Diarrhoea [Recovered/Resolved]
  - Abdominal discomfort [Unknown]

NARRATIVE: CASE EVENT DATE: 20200825
